FAERS Safety Report 25243859 (Version 1)
Quarter: 2025Q2

REPORT INFORMATION
  Report Type: Spontaneous
  Country: US (occurrence: US)
  Receive Date: 20250428
  Receipt Date: 20250428
  Transmission Date: 20250717
  Serious: No
  Sender: SANDOZ
  Company Number: US-SANDOZ-SDZ2025US026137

PATIENT
  Age: 64 Year
  Sex: Male

DRUGS (1)
  1. ADALIMUMAB [Suspect]
     Active Substance: ADALIMUMAB
     Indication: Product used for unknown indication
     Dosage: 40 MG, Q2W
     Route: 065
     Dates: start: 20250424, end: 20250424

REACTIONS (4)
  - Product administration error [Unknown]
  - Accidental exposure to product [Unknown]
  - Exposure via skin contact [Unknown]
  - Device issue [Unknown]

NARRATIVE: CASE EVENT DATE: 20250424
